FAERS Safety Report 9897124 (Version 1)
Quarter: 2014Q1

REPORT INFORMATION
  Report Type: Spontaneous
  Country: US (occurrence: US)
  Receive Date: 20140214
  Receipt Date: 20140214
  Transmission Date: 20141002
  Serious: No
  Sender: FDA-Public Use
  Company Number: US-009507513-1402USA004682

PATIENT
  Sex: Female

DRUGS (1)
  1. COSOPT [Suspect]
     Indication: GLAUCOMA
     Dosage: ONE DROP IN THE LEFT EYE AND 2 DROPS TO THE RIGHT EYE ONCE DAILY
     Route: 047
     Dates: start: 2001

REACTIONS (1)
  - Anaemia [Not Recovered/Not Resolved]
